FAERS Safety Report 4763232-9 (Version None)
Quarter: 2005Q3

REPORT INFORMATION
  Report Type: 
  Country: None (occurrence: None)
  Receive Date: 20050902
  Receipt Date: 20050819
  Transmission Date: 20060218
  Serious: Yes (Disabling)
  Sender: FDA-Public Use
  Company Number: HQWYE027819AUG05

PATIENT
  Age: 70 Year
  Sex: Male

DRUGS (12)
  1. CORDARONE [Suspect]
     Dosage: 200 MG 1X PER 1 DAY
     Route: 048
     Dates: start: 19970101, end: 20050705
  2. TOREM (TORASEMIDE) [Concomitant]
  3. LEVOTHYROXINE SODIUM [Concomitant]
  4. KARVEZIDE (IRBESARTAN/HYDROCHLOROTHIAZIDE) [Concomitant]
  5. KARVEA (IRBESARTAN) [Concomitant]
  6. CLONIDINE [Concomitant]
  7. MODURETIC 5-50 [Concomitant]
  8. PREDNISONE TAB [Concomitant]
  9. AMARYL [Concomitant]
  10. ASS ^CT-ARZNEIMITTEL^ [Concomitant]
  11. NEXIUM [Concomitant]
  12. ALLOPURINOL [Concomitant]

REACTIONS (7)
  - DIZZINESS [None]
  - GLARE [None]
  - NEUROPATHY PERIPHERAL [None]
  - NIGHTMARE [None]
  - PNEUMONIA [None]
  - SKIN DISCOLOURATION [None]
  - VISION BLURRED [None]
